FAERS Safety Report 10169183 (Version 1)
Quarter: 2014Q2

REPORT INFORMATION
  Report Type: Spontaneous
  Country: US (occurrence: US)
  Receive Date: 20140513
  Receipt Date: 20140513
  Transmission Date: 20141212
  Serious: Yes (Hospitalization)
  Sender: FDA-Public Use
  Company Number: US-PFIZER INC-2014126568

PATIENT
  Age: 30 Year
  Sex: Female

DRUGS (3)
  1. METHIMAZOLE [Suspect]
     Indication: BASEDOW^S DISEASE
     Dosage: UNK
  2. METHIMAZOLE [Suspect]
     Indication: THYROTOXIC CRISIS
  3. PROPRANOLOL [Concomitant]
     Indication: BASEDOW^S DISEASE
     Dosage: UNK

REACTIONS (4)
  - Angioedema [Recovered/Resolved]
  - Dyspnoea [Recovered/Resolved]
  - Hypersensitivity [Recovered/Resolved]
  - Drug ineffective [Recovered/Resolved]
